FAERS Safety Report 15901750 (Version 12)
Quarter: 2020Q3

REPORT INFORMATION
  Report Type: Spontaneous
  Country: US (occurrence: US)
  Receive Date: 20190201
  Receipt Date: 20200702
  Transmission Date: 20201102
  Serious: Yes (Hospitalization)
  Sender: FDA-Public Use
  Company Number: US-ACTELION-A-NJ2019-185451

PATIENT
  Age: 64 Year
  Sex: Female
  Weight: 86.17 kg

DRUGS (5)
  1. GABAPENTIN. [Suspect]
     Active Substance: GABAPENTIN
     Indication: PRODUCT USED FOR UNKNOWN INDICATION
     Route: 065
  2. OPSUMIT [Suspect]
     Active Substance: MACITENTAN
     Indication: PULMONARY HYPERTENSION
     Dosage: 10 MG, QD
     Route: 048
     Dates: start: 20170411
  3. TYVASO [Suspect]
     Active Substance: TREPROSTINIL
     Indication: PRODUCT USED FOR UNKNOWN INDICATION
     Route: 065
  4. TADALAFIL. [Concomitant]
     Active Substance: TADALAFIL
  5. OXYGEN. [Concomitant]
     Active Substance: OXYGEN
     Dosage: 8 L

REACTIONS (22)
  - Neuralgia [Unknown]
  - Sinus disorder [Unknown]
  - Balance disorder [Unknown]
  - Nasal congestion [Not Recovered/Not Resolved]
  - Weight increased [Unknown]
  - Asthenopia [Unknown]
  - Palpitations [Unknown]
  - Dizziness exertional [Unknown]
  - Headache [Not Recovered/Not Resolved]
  - Dyspnoea [Not Recovered/Not Resolved]
  - Pneumonia [Unknown]
  - Condition aggravated [Unknown]
  - Pulmonary arterial hypertension [Unknown]
  - Dizziness [Not Recovered/Not Resolved]
  - Ocular hyperaemia [Unknown]
  - Fatigue [Not Recovered/Not Resolved]
  - Dysphonia [Unknown]
  - Gait disturbance [Unknown]
  - Vertigo [Unknown]
  - Rhinorrhoea [Not Recovered/Not Resolved]
  - Dyspnoea exertional [Unknown]
  - Mucosal dryness [Not Recovered/Not Resolved]

NARRATIVE: CASE EVENT DATE: 201804
